FAERS Safety Report 14705688 (Version 1)
Quarter: 2018Q2

REPORT INFORMATION
  Report Type: Spontaneous
  Country: US (occurrence: US)
  Receive Date: 20180402
  Receipt Date: 20180402
  Transmission Date: 20180711
  Serious: Yes (Hospitalization, Other)
  Sender: FDA-Public Use
  Company Number: US-TEVA-2018-US-875762

PATIENT
  Sex: Female

DRUGS (3)
  1. LABETALOL [Concomitant]
     Active Substance: LABETALOL\LABETALOL HYDROCHLORIDE
     Indication: HYPERTENSION
     Route: 065
  2. BRILINTA [Concomitant]
     Active Substance: TICAGRELOR
     Route: 065
  3. PROAIR HFA [Suspect]
     Active Substance: ALBUTEROL SULFATE
     Indication: ASTHMA
     Route: 065
     Dates: start: 201710

REACTIONS (8)
  - Arthralgia [Unknown]
  - Renal disorder [Unknown]
  - Lip swelling [Unknown]
  - Dry mouth [Unknown]
  - Skin exfoliation [Unknown]
  - Diarrhoea [Unknown]
  - Dry throat [Unknown]
  - Spinal pain [Unknown]
